FAERS Safety Report 12403294 (Version 1)
Quarter: 2016Q2

REPORT INFORMATION
  Report Type: Spontaneous
  Country: US (occurrence: US)
  Receive Date: 20160525
  Receipt Date: 20160525
  Transmission Date: 20160815
  Serious: Yes (Other)
  Sender: FDA-Public Use
  Company Number: US-WARNER CHILCOTT, LLC-1052803

PATIENT
  Sex: Female

DRUGS (4)
  1. ESTRACE [Suspect]
     Active Substance: ESTRADIOL
     Indication: BLADDER OPERATION
     Route: 067
     Dates: start: 20160513, end: 20160514
  2. BENAZEPRIL [Concomitant]
     Active Substance: BENAZEPRIL HYDROCHLORIDE
  3. ESTRACE [Suspect]
     Active Substance: ESTRADIOL
     Indication: PREOPERATIVE CARE
     Route: 067
     Dates: start: 20160513, end: 20160514
  4. CARVEDILOL. [Concomitant]
     Active Substance: CARVEDILOL

REACTIONS (4)
  - Product use issue [Unknown]
  - Blood pressure increased [Unknown]
  - Epistaxis [Unknown]
  - Dizziness [Unknown]

NARRATIVE: CASE EVENT DATE: 20160513
